FAERS Safety Report 9167062 (Version 1)
Quarter: 2013Q1

REPORT INFORMATION
  Report Type: Spontaneous
  Country: DE (occurrence: DE)
  Receive Date: 20130318
  Receipt Date: 20130318
  Transmission Date: 20140127
  Serious: Yes (Other)
  Sender: FDA-Public Use
  Company Number: DE-009507513-1303DEU007270

PATIENT
  Sex: Male

DRUGS (1)
  1. PROPECIA 1MG FILMTABLETTEN [Suspect]
     Indication: ALOPECIA
     Dosage: 1 MG, UNK
     Route: 048

REACTIONS (1)
  - Myasthenia gravis [Not Recovered/Not Resolved]
